FAERS Safety Report 6656768 (Version 3)
Quarter: 2020Q3

REPORT INFORMATION
  Report Type: Report from Study
  Country: US (occurrence: US)
  Receive Date: 20080604
  Receipt Date: 20081009
  Transmission Date: 20201104
  Serious: Yes (Death, Other)
  Sender: FDA-Public Use
  Company Number: US-WYE-H04242308

PATIENT
  Age: 68 Year
  Sex: Male
  Weight: 83.26 kg

DRUGS (3)
  1. INOTUZUMAB OZOGAMICIN [Suspect]
     Active Substance: INOTUZUMAB OZOGAMICIN
     Indication: DIFFUSE LARGE B-CELL LYMPHOMA
     Route: 042
     Dates: start: 20060918, end: 20070403
  2. LASIX [Concomitant]
     Active Substance: FUROSEMIDE
     Indication: ASCITES
     Dosage: UNKNOWN
     Route: 065
     Dates: start: 20080124, end: 20080601
  3. UNSPECIFIED INGREDIENT [Suspect]
     Active Substance: UNSPECIFIED INGREDIENT
     Indication: DIFFUSE LARGE B-CELL LYMPHOMA
     Route: 042
     Dates: start: 20060918, end: 20070402

REACTIONS (2)
  - Hepatic fibrosis [Fatal]
  - Ascites [Fatal]

NARRATIVE: CASE EVENT DATE: 20080101
